FAERS Safety Report 10230021 (Version 2)
Quarter: 2014Q2

REPORT INFORMATION
  Report Type: Report from Study
  Country: GB (occurrence: GB)
  Receive Date: 20140611
  Receipt Date: 20140611
  Transmission Date: 20141212
  Serious: Yes (Disabling)
  Sender: FDA-Public Use
  Company Number: GB-CELGENEUS-167-20785-13094461

PATIENT
  Age: 48 Year
  Sex: Male

DRUGS (3)
  1. THALIDOMIDE [Suspect]
     Indication: PLASMA CELL MYELOMA
     Route: 048
  2. REVLIMID [Suspect]
     Indication: PLASMA CELL MYELOMA
     Route: 048
     Dates: end: 20130708
  3. VORINOSTAT [Concomitant]
     Indication: PLASMA CELL MYELOMA
     Route: 048
     Dates: end: 20130708

REACTIONS (2)
  - Autoimmune disorder [Recovered/Resolved]
  - Erythema [Recovered/Resolved]
